FAERS Safety Report 7789272-3 (Version None)
Quarter: 2011Q3

REPORT INFORMATION
  Report Type: 
  Country: None (occurrence: None)
  Receive Date: 20110930
  Receipt Date: 20110926
  Transmission Date: 20111222
  Serious: Yes (Other)
  Sender: FDA-Public Use
  Company Number: GB-GLAXOSMITHKLINE-B0750088A

PATIENT
  Age: 63 Year
  Sex: Female
  Weight: 40 kg

DRUGS (6)
  1. ATORVASTATIN [Concomitant]
  2. RABEPRAZOLE SODIUM [Concomitant]
  3. DIGIBIND [Suspect]
     Indication: TOXICITY TO VARIOUS AGENTS
     Route: 042
     Dates: start: 20110915, end: 20110915
  4. CLOPIDOGREL [Concomitant]
  5. DOXAZOSIN MESYLATE [Concomitant]
  6. FERROUS SULFATE TAB [Concomitant]

REACTIONS (1)
  - HYPERTENSION [None]
